FAERS Safety Report 8537664-7 (Version None)
Quarter: 2012Q3

REPORT INFORMATION
  Report Type: 
  Country: None (occurrence: None)
  Receive Date: 20120725
  Receipt Date: 20120722
  Transmission Date: 20120928
  Serious: Yes (Other)
  Sender: FDA-Public Use
  Company Number: PHHY2012MX063579

PATIENT
  Sex: Female

DRUGS (3)
  1. ZOLEDRONOC ACID [Suspect]
     Indication: OSTEOPOROSIS
     Dosage: 5 MG / 100 ML EACH YEAR
     Route: 042
     Dates: start: 20090101
  2. ATACAND [Concomitant]
     Indication: HYPERTENSION
     Dosage: 1 DF, UNK
     Dates: start: 20090101
  3. LEVOTHYROXINE SODIUM [Concomitant]
     Indication: THYROID DISORDER
     Dosage: 1 DF, UNK
     Dates: start: 20080101

REACTIONS (2)
  - HIP FRACTURE [None]
  - FEMUR FRACTURE [None]
